FAERS Safety Report 10378928 (Version 1)
Quarter: 2014Q3

REPORT INFORMATION
  Report Type: Spontaneous
  Country: US (occurrence: None)
  Receive Date: 20140811
  Receipt Date: 20140811
  Transmission Date: 20150326
  Serious: Yes (Hospitalization, Disabling, Other)
  Sender: FDA-Public Use
  Company Number: None

PATIENT
  Age: 52 Year
  Sex: Male
  Weight: 118.84 kg

DRUGS (1)
  1. LIPITOR [Suspect]
     Active Substance: ATORVASTATIN CALCIUM
     Indication: BLOOD CHOLESTEROL
     Dates: start: 20070501, end: 20070901

REACTIONS (5)
  - Amnesia [None]
  - Neuropathy peripheral [None]
  - Walking aid user [None]
  - Brain injury [None]
  - Myopathy [None]

NARRATIVE: CASE EVENT DATE: 20070901
